FAERS Safety Report 26186229 (Version 1)
Quarter: 2025Q4

REPORT INFORMATION
  Report Type: Spontaneous
  Country: US (occurrence: None)
  Receive Date: 20251221
  Receipt Date: 20251221
  Transmission Date: 20260117
  Serious: Yes (Life-Threatening, Disabling, Other)
  Sender: FDA-CTU
  Company Number: None

PATIENT
  Age: 23 Year
  Sex: Female
  Weight: 87.75 kg

DRUGS (1)
  1. TIRZEPATIDE [Suspect]
     Active Substance: TIRZEPATIDE
     Dates: start: 20240120, end: 20251210

REACTIONS (5)
  - Food intolerance [None]
  - Illness [None]
  - Product complaint [None]
  - Product contamination [None]
  - Liquid product physical issue [None]

NARRATIVE: CASE EVENT DATE: 20251210
